FAERS Safety Report 6144009-9 (Version None)
Quarter: 2009Q2

REPORT INFORMATION
  Report Type: 
  Country: None (occurrence: None)
  Receive Date: 20090401
  Receipt Date: 20090319
  Transmission Date: 20091009
  Serious: Yes (Hospitalization)
  Sender: FDA-Public Use
  Company Number: IDA-00192

PATIENT
  Age: 61 Year
  Sex: Male

DRUGS (7)
  1. AVLOCARDYL (PROPANOLOL) [Suspect]
     Indication: HYPERTENSION
     Dosage: TABLET, ORAL
     Route: 048
  2. BACTRIM [Suspect]
     Dosage: ORAL
     Route: 048
  3. NEORAL [Suspect]
     Dosage: 75 MG BID, ORAL
     Route: 048
     Dates: start: 20081221
  4. CELLCEPT [Suspect]
     Dosage: 1 G BID, ORAL
     Route: 048
     Dates: start: 20081221
  5. RIMIFON [Suspect]
     Dosage: 150 MG DAILY, ORAL
     Route: 048
     Dates: start: 20081221
  6. INIPOMP (PANTOPRAZOLE) STRENGTH: 20MG [Suspect]
     Dosage: 20 MG DAILY, ORAL
     Route: 048
     Dates: start: 20081221
  7. SOLUPRED (PREDNISOLONE SODIUM SULFOBENZOATE) STRENGTH: 10 MG [Suspect]
     Dosage: 10 MG DAILY, ORAL
     Route: 048
     Dates: start: 20081221

REACTIONS (3)
  - ARTHRITIS [None]
  - HYPERURICAEMIA [None]
  - RENAL TRANSPLANT [None]
